FAERS Safety Report 15814406 (Version 1)
Quarter: 2019Q1

REPORT INFORMATION
  Report Type: Spontaneous
  Country: PT (occurrence: PT)
  Receive Date: 20190111
  Receipt Date: 20190111
  Transmission Date: 20190417
  Serious: Yes (Other)
  Sender: FDA-Public Use
  Company Number: PT-MYLANLABS-2019M1002123

PATIENT
  Age: 59 Year
  Sex: Male

DRUGS (1)
  1. AMLODIPINE [Suspect]
     Active Substance: AMLODIPINE BESYLATE
     Indication: HYPERTENSIVE CRISIS
     Dosage: UNK

REACTIONS (8)
  - Medication error [Unknown]
  - Gaze palsy [Recovered/Resolved]
  - Facial paresis [Recovered/Resolved]
  - Thrombosis [Unknown]
  - Dysarthria [Recovered/Resolved]
  - Hemiplegia [Recovered/Resolved]
  - Hypoperfusion [Recovered/Resolved]
  - Ischaemic stroke [Recovered/Resolved]
